FAERS Safety Report 18230975 (Version 2)
Quarter: 2020Q3

REPORT INFORMATION
  Report Type: Report from Study
  Country: None (occurrence: BG)
  Receive Date: 20200904
  Receipt Date: 20200927
  Transmission Date: 20201103
  Serious: Yes (Hospitalization, Other)
  Sender: FDA-Public Use
  Company Number: BG-ABBVIE-20K-022-3547685-00

PATIENT
  Sex: Male

DRUGS (2)
  1. DUODOPA [Suspect]
     Active Substance: CARBIDOPA\LEVODOPA
  2. DUODOPA [Suspect]
     Active Substance: CARBIDOPA\LEVODOPA
     Indication: PARKINSON^S DISEASE
     Dosage: MD? 10.0 ML??CR? 4.0 ML/H??EX? 1.0 ML
     Route: 050
     Dates: start: 20150310

REACTIONS (7)
  - Colitis [Not Recovered/Not Resolved]
  - Weight decreased [Unknown]
  - Decreased appetite [Unknown]
  - Ileus [Unknown]
  - Enteritis [Not Recovered/Not Resolved]
  - Abdominal pain upper [Unknown]
  - Gastrointestinal pain [Unknown]
